FAERS Safety Report 10034693 (Version 1)
Quarter: 2014Q1

REPORT INFORMATION
  Report Type: Spontaneous
  Country: DE (occurrence: DE)
  Receive Date: 20140325
  Receipt Date: 20140325
  Transmission Date: 20141002
  Serious: Yes (Hospitalization, Congenital Anomaly)
  Sender: FDA-Public Use
  Company Number: DE-ASTELLAS-2014EU002520

PATIENT
  Sex: Male
  Weight: 3.38 kg

DRUGS (1)
  1. TACROLIMUS SYSTEMIC [Suspect]
     Indication: FOETAL EXPOSURE DURING PREGNANCY
     Dosage: UNK
     Route: 064

REACTIONS (1)
  - Hypoplastic left heart syndrome [Recovering/Resolving]
